FAERS Safety Report 10678575 (Version 2)
Quarter: 2015Q1

REPORT INFORMATION
  Report Type: Spontaneous
  Country: FI (occurrence: FI)
  Receive Date: 20141229
  Receipt Date: 20150122
  Transmission Date: 20150720
  Serious: Yes (Other)
  Sender: FDA-Public Use
  Company Number: FI-ELI_LILLY_AND_COMPANY-FI201412007624

PATIENT
  Age: 44 Year
  Sex: Male

DRUGS (5)
  1. ANTABUSE [Concomitant]
     Active Substance: DISULFIRAM
     Indication: ALCOHOL ABUSE
  2. MELATONIN [Concomitant]
     Active Substance: MELATONIN
  3. STRATTERA [Suspect]
     Active Substance: ATOMOXETINE HYDROCHLORIDE
     Indication: ATTENTION DEFICIT/HYPERACTIVITY DISORDER
     Dosage: 40 MG, UNKNOWN
     Route: 065
     Dates: start: 20140624
  4. DIAPAM                             /00017001/ [Concomitant]
     Dosage: 5 MG, PRN
     Route: 065
  5. STRATTERA [Suspect]
     Active Substance: ATOMOXETINE HYDROCHLORIDE
     Dosage: 80 MG, UNKNOWN
     Route: 065
     Dates: start: 20140825

REACTIONS (4)
  - Hostility [Recovered/Resolved]
  - Anger [Recovered/Resolved]
  - Self-injurious ideation [Recovered/Resolved]
  - Depressed mood [Recovered/Resolved]
